FAERS Safety Report 25594275 (Version 2)
Quarter: 2025Q3

REPORT INFORMATION
  Report Type: Spontaneous
  Country: CH (occurrence: CH)
  Receive Date: 20250723
  Receipt Date: 20250805
  Transmission Date: 20251020
  Serious: Yes (Disabling, Other)
  Sender: NOVO NORDISK
  Company Number: CH-NOVOPROD-1480547

PATIENT
  Age: 86 Year
  Sex: Male
  Weight: 80 kg

DRUGS (3)
  1. RYBELSUS [Suspect]
     Active Substance: SEMAGLUTIDE
     Indication: Type 2 diabetes mellitus
     Dosage: 14 MG, QD
     Route: 048
     Dates: start: 2023, end: 202506
  2. TOUJEO [Concomitant]
     Active Substance: INSULIN GLARGINE
     Dates: start: 2020
  3. NOVORAPID [Concomitant]
     Active Substance: INSULIN ASPART
     Indication: Product used for unknown indication
     Route: 058
     Dates: start: 2020

REACTIONS (1)
  - Ocular vascular disorder [Not Recovered/Not Resolved]

NARRATIVE: CASE EVENT DATE: 20250501
